FAERS Safety Report 7060567-4 (Version None)
Quarter: 2010Q4

REPORT INFORMATION
  Report Type: 
  Country: None (occurrence: None)
  Receive Date: 20101025
  Receipt Date: 20101018
  Transmission Date: 20110411
  Serious: Yes (Other)
  Sender: FDA-Public Use
  Company Number: JP-SHIRE-SPV1-2010-01620

PATIENT
  Sex: Male

DRUGS (8)
  1. FOSRENOL [Suspect]
     Indication: HYPERPHOSPHATAEMIA
     Dosage: 750 MG DAILY DOSE, OTHER
     Route: 048
     Dates: start: 20091225, end: 20100319
  2. FOSRENOL [Suspect]
     Dosage: 750 MG DAILY DOSE, OTHER
     Route: 048
     Dates: start: 20100529
  3. TICLOPIDINE HCL [Concomitant]
     Indication: CEREBRAL INFARCTION
     Dosage: 200 MG, UNKNOWN
     Route: 048
  4. PRERAN [Concomitant]
     Indication: HYPERTENSION
     Dosage: 2 MG, UNKNOWN
     Route: 048
  5. CALCIUM CARBONATE [Concomitant]
     Indication: BLOOD PHOSPHORUS INCREASED
     Dosage: 3 G, UNKNOWN
     Route: 048
  6. ITOROL [Concomitant]
     Indication: ANGINA PECTORIS
     Dosage: 40 MG, UNKNOWN
     Route: 048
  7. PIMOBENDAN [Concomitant]
     Indication: CARDIAC FAILURE
     Dosage: 2 DF, UNKNOWN
     Route: 048
  8. REMITCH [Concomitant]
     Indication: PRURITUS
     Dosage: 1 DF, UNKNOWN
     Route: 048

REACTIONS (3)
  - ASPIRATION [None]
  - CHEST X-RAY ABNORMAL [None]
  - WRONG TECHNIQUE IN DRUG USAGE PROCESS [None]
